FAERS Safety Report 24583286 (Version 2)
Quarter: 2024Q4

REPORT INFORMATION
  Report Type: Spontaneous
  Country: JP (occurrence: JP)
  Receive Date: 20241106
  Receipt Date: 20241212
  Transmission Date: 20250115
  Serious: Yes (Other)
  Sender: CSL BEHRING
  Company Number: JP-BEH-2024183376

PATIENT
  Age: 60 Year
  Sex: Female

DRUGS (4)
  1. IDELVION [Suspect]
     Active Substance: COAGULATION FACTOR IX RECOMBINANT HUMAN
     Indication: Haemostasis
     Dosage: 4000 IU, SINGLE
     Route: 042
     Dates: start: 20241022
  2. IDELVION [Suspect]
     Active Substance: COAGULATION FACTOR IX RECOMBINANT HUMAN
     Indication: Haemostasis
     Dosage: 4000 IU, SINGLE
     Route: 042
     Dates: start: 20241022
  3. IDELVION [Suspect]
     Active Substance: COAGULATION FACTOR IX RECOMBINANT HUMAN
     Indication: Gastric haemorrhage
     Dosage: 2000 IU, EVERY DAY
     Route: 042
     Dates: start: 20241023, end: 20241025
  4. IDELVION [Suspect]
     Active Substance: COAGULATION FACTOR IX RECOMBINANT HUMAN
     Indication: Gastric haemorrhage
     Dosage: 2000 IU, EVERY DAY
     Route: 042
     Dates: start: 20241023, end: 20241025

REACTIONS (2)
  - Gastric haemorrhage [Unknown]
  - Anaemia [Recovered/Resolved]

NARRATIVE: CASE EVENT DATE: 20241023
